FAERS Safety Report 12618172 (Version 2)
Quarter: 2016Q3

REPORT INFORMATION
  Report Type: Report from Study
  Country: DE (occurrence: DE)
  Receive Date: 20160803
  Receipt Date: 20160829
  Transmission Date: 20161109
  Serious: Yes (Death)
  Sender: FDA-Public Use
  Company Number: DE-CELGENEUS-THADE200600150

PATIENT
  Age: 56 Year
  Sex: Male
  Weight: 72 kg

DRUGS (4)
  1. MOVICOL [Concomitant]
     Active Substance: POLYETHYLENE GLYCOL 3350\POTASSIUM CHLORIDE\SODIUM BICARBONATE\SODIUM CHLORIDE
     Indication: CONSTIPATION
     Route: 065
  2. RILUTEK [Concomitant]
     Active Substance: RILUZOLE
     Indication: AMYOTROPHIC LATERAL SCLEROSIS
     Dosage: 100 MG
     Route: 048
     Dates: start: 20050216
  3. THALIDOMIDE PHARMION [Suspect]
     Active Substance: THALIDOMIDE
     Indication: AMYOTROPHIC LATERAL SCLEROSIS
     Dosage: 100 MG/DAY AND GRADUALLY INCREASED UNTIL 400 MG/DAY
     Route: 048
     Dates: start: 20060220, end: 20060508
  4. THALIDOMIDE PHARMION [Suspect]
     Active Substance: THALIDOMIDE
     Dosage: 400 MG/DAY
     Route: 048
     Dates: start: 20060508, end: 20060612

REACTIONS (9)
  - Bradyarrhythmia [Fatal]
  - Emphysema [Fatal]
  - Polyneuropathy [Unknown]
  - Cor pulmonale chronic [Fatal]
  - Cardiac arrest [Fatal]
  - Asthenia [Unknown]
  - Constipation [Unknown]
  - Cardiac failure [Fatal]
  - Dizziness [Unknown]

NARRATIVE: CASE EVENT DATE: 20060614
